FAERS Safety Report 9168533 (Version 1)
Quarter: 2013Q1

REPORT INFORMATION
  Report Type: Spontaneous
  Country: FR (occurrence: FR)
  Receive Date: 20130318
  Receipt Date: 20130318
  Transmission Date: 20140127
  Serious: Yes (Death)
  Sender: FDA-Public Use
  Company Number: FR-B.I. PHARMACEUTICALS,INC./RIDGEFIELD-2013-FF-00733FF

PATIENT
  Age: 87 Year
  Sex: Male

DRUGS (10)
  1. PRADAXA [Suspect]
     Indication: ATRIAL FIBRILLATION
     Dosage: 220 MG
     Route: 048
     Dates: start: 20130227
  2. PLAVIX [Concomitant]
     Dosage: 75 MG
  3. OMEPRAZOLE [Concomitant]
  4. ALFUZOSINE [Concomitant]
  5. HALDOL [Concomitant]
  6. SELOKEN [Concomitant]
  7. IMOVANE [Concomitant]
  8. CORDARONE [Concomitant]
     Dosage: 200 MG
  9. BRICANYL [Concomitant]
  10. ATROVENT [Concomitant]

REACTIONS (1)
  - Haemoptysis [Fatal]
